FAERS Safety Report 9277758 (Version 2)
Quarter: 2013Q3

REPORT INFORMATION
  Report Type: Spontaneous
  Country: US (occurrence: US)
  Receive Date: 20130508
  Receipt Date: 20130719
  Transmission Date: 20140515
  Serious: No
  Sender: FDA-Public Use
  Company Number: US-BIOGENIDEC-2013BI040031

PATIENT
  Age: 55 Year
  Sex: Male

DRUGS (13)
  1. TYSABRI [Suspect]
     Indication: MULTIPLE SCLEROSIS
     Route: 042
     Dates: start: 20100112
  2. BACLOFEN [Concomitant]
     Indication: MUSCLE SPASMS
     Route: 048
     Dates: start: 20121228
  3. DIAZEPAM [Concomitant]
     Route: 048
  4. TIZANIDINE HCL [Concomitant]
     Route: 048
  5. HUMALOG [Concomitant]
  6. LANTUS [Concomitant]
     Route: 058
  7. SERTRALINE HCL [Concomitant]
     Route: 048
  8. ZEBETA [Concomitant]
     Route: 048
  9. CLOTRIMAZOLE [Concomitant]
  10. ASPIRIN [Concomitant]
     Route: 048
  11. FUROSEMIDE [Concomitant]
     Route: 048
  12. METFORMIN HCL [Concomitant]
     Route: 048
  13. ZOLOFT [Concomitant]
     Route: 048

REACTIONS (7)
  - Paranasal sinus mucosal hypertrophy [Unknown]
  - Mucosal inflammation [Unknown]
  - Nasal inflammation [Unknown]
  - Somnolence [Unknown]
  - Blood pressure decreased [Unknown]
  - Fatigue [Unknown]
  - Drug ineffective [Unknown]
